FAERS Safety Report 13525826 (Version 1)
Quarter: 2017Q2

REPORT INFORMATION
  Report Type: Spontaneous
  Country: US (occurrence: US)
  Receive Date: 20170509
  Receipt Date: 20170509
  Transmission Date: 20170830
  Serious: Yes (Life-Threatening, Hospitalization, Other)
  Sender: FDA-Public Use
  Company Number: US-ORION CORPORATION ORION PHARMA-17_00002332

PATIENT
  Age: 52 Year
  Sex: Female

DRUGS (1)
  1. METHOTREXATE. [Suspect]
     Active Substance: METHOTREXATE
     Indication: RHEUMATOID ARTHRITIS
     Route: 065

REACTIONS (10)
  - Cellulitis [Unknown]
  - Fasciitis [Unknown]
  - Transaminases increased [Recovered/Resolved]
  - Pyomyositis [Unknown]
  - Toxicity to various agents [Unknown]
  - Skin ulcer [Recovered/Resolved]
  - Acute kidney injury [Unknown]
  - Pancytopenia [Recovered/Resolved]
  - Staphylococcal infection [Unknown]
  - Haematoma [Unknown]
